FAERS Safety Report 13392674 (Version 1)
Quarter: 2017Q1

REPORT INFORMATION
  Report Type: Spontaneous
  Country: US (occurrence: US)
  Receive Date: 20170331
  Receipt Date: 20170331
  Transmission Date: 20170429
  Serious: No
  Sender: FDA-Public Use
  Company Number: US-BAYER-2017-061491

PATIENT
  Age: 75 Year
  Sex: Female
  Weight: 51 kg

DRUGS (4)
  1. MORFINE [Concomitant]
     Active Substance: MORPHINE
  2. BAYER LOW DOSE [Concomitant]
     Active Substance: ASPIRIN
     Dosage: 1 UNK, UNK
     Route: 048
  3. MIRALAX [Suspect]
     Active Substance: POLYETHYLENE GLYCOL 3350
     Dosage: UNK,17 G IN 4 TO 8 OUNCES OF FLUID
     Route: 048
  4. TYLENOL EXTRA STRENGTH [Concomitant]
     Active Substance: ACETAMINOPHEN

REACTIONS (1)
  - Product use issue [Unknown]

NARRATIVE: CASE EVENT DATE: 20170329
